FAERS Safety Report 21115182 (Version 1)
Quarter: 2022Q3

REPORT INFORMATION
  Report Type: Spontaneous
  Country: US (occurrence: US)
  Receive Date: 20220721
  Receipt Date: 20220721
  Transmission Date: 20221026
  Serious: No
  Sender: FDA-Public Use
  Company Number: US-PFIZER INC-PV202200025056

PATIENT
  Age: 68 Year
  Sex: Female

DRUGS (15)
  1. ZITHROMAX [Interacting]
     Active Substance: AZITHROMYCIN DIHYDRATE
     Indication: Product used for unknown indication
     Dosage: 6 DF, DAILY (6 TAB AT 09.30 PM)
     Dates: start: 20220615, end: 20220615
  2. ZITHROMAX [Interacting]
     Active Substance: AZITHROMYCIN DIHYDRATE
     Dosage: 5 DF, DAILY (5 TAB, UNKNOWN)
     Dates: start: 20220616, end: 20220616
  3. ZITHROMAX [Interacting]
     Active Substance: AZITHROMYCIN DIHYDRATE
     Dosage: 4 DF, DAILY (4 TAB, UNKNOWN)
     Dates: start: 20220617, end: 20220617
  4. ZITHROMAX [Interacting]
     Active Substance: AZITHROMYCIN DIHYDRATE
     Dosage: 3 DF, DAILY (3 TAB, UNKNOWN)
     Dates: start: 20220618, end: 20220618
  5. ZITHROMAX [Interacting]
     Active Substance: AZITHROMYCIN DIHYDRATE
     Dosage: 2 DF, DAILY (2 TAB, UNKNOWN)
     Dates: start: 20220619, end: 20220619
  6. ZITHROMAX [Interacting]
     Active Substance: AZITHROMYCIN DIHYDRATE
     Dosage: 1 DF, DAILY (1 TAB, UNKNOWN)
     Dates: start: 20220620, end: 20220620
  7. TYMLOS [Interacting]
     Active Substance: ABALOPARATIDE
     Indication: Senile osteoporosis
     Dosage: 80 UG, DAILY
     Route: 058
     Dates: start: 2021, end: 20220620
  8. TYMLOS [Interacting]
     Active Substance: ABALOPARATIDE
     Indication: Osteoporotic fracture
     Dosage: 80 UG, DAILY
     Route: 058
     Dates: start: 2021, end: 20220620
  9. PREDNISONE [Interacting]
     Active Substance: PREDNISONE
     Indication: Product used for unknown indication
     Dosage: UNK
  10. CARTIA XT [Concomitant]
     Active Substance: DILTIAZEM HYDROCHLORIDE
     Dosage: UNK
  11. VITAMIN C [Concomitant]
     Active Substance: ASCORBIC ACID
     Dosage: UNK
  12. CALCIUM [Concomitant]
     Active Substance: CALCIUM
     Dosage: UNK
  13. CHOLECALCIFEROL [Concomitant]
     Active Substance: CHOLECALCIFEROL
     Dosage: UNK
  14. HYDROCHLOROTHIAZIDE [Concomitant]
     Active Substance: HYDROCHLOROTHIAZIDE
     Dosage: UNK
  15. ASPIRIN [Concomitant]
     Active Substance: ASPIRIN
     Dosage: UNK

REACTIONS (6)
  - Chest pain [Recovered/Resolved]
  - Drug interaction [Recovered/Resolved]
  - Bone pain [Unknown]
  - Muscle spasms [Recovered/Resolved]
  - Pain [Recovered/Resolved]
  - Back pain [Recovered/Resolved]

NARRATIVE: CASE EVENT DATE: 20220616
